FAERS Safety Report 7915427-0 (Version None)
Quarter: 2011Q4

REPORT INFORMATION
  Report Type: 
  Country: None (occurrence: None)
  Receive Date: 20111115
  Receipt Date: 20111111
  Transmission Date: 20120403
  Serious: Yes (Hospitalization, Other)
  Sender: FDA-Public Use
  Company Number: BR-ABBOTT-11P-020-0725733-00

PATIENT
  Sex: Female
  Weight: 80 kg

DRUGS (13)
  1. PREDNISONE [Concomitant]
     Indication: ARTHRITIS
     Route: 048
  2. CIMETIDINE [Concomitant]
     Indication: PROPHYLAXIS
     Dosage: WHEN FEELS PAIN
     Route: 048
  3. HUMIRA [Suspect]
     Indication: RHEUMATOID ARTHRITIS
     Route: 058
     Dates: start: 20090601, end: 20110301
  4. CHLOROQUINE DIPHOSPHATE [Suspect]
     Indication: PRODUCT USED FOR UNKNOWN INDICATION
     Route: 048
  5. CIMETIDINE [Concomitant]
     Indication: PAIN
  6. SIMVASTATIN [Concomitant]
     Indication: PRODUCT USED FOR UNKNOWN INDICATION
     Dates: start: 20090625
  7. ACETAMINOPHEN [Concomitant]
     Indication: PAIN
     Route: 048
  8. PREDNISONE [Concomitant]
     Route: 048
  9. METHOTREXATE [Concomitant]
     Indication: ARTHRITIS
     Route: 048
  10. LEVOTHYROXINE SODIUM [Concomitant]
     Indication: HYPOTHYROIDISM
     Route: 048
  11. FOLIC ACID [Concomitant]
     Indication: IMMUNODEFICIENCY
     Route: 048
  12. CIMETIDINE [Concomitant]
     Indication: GASTRIC DISORDER
  13. FERROUS SULFATE TAB [Concomitant]
     Indication: ANAEMIA
     Route: 048

REACTIONS (20)
  - AMNESIA [None]
  - PNEUMONIA [None]
  - BACK PAIN [None]
  - ARTHROPOD BITE [None]
  - DIZZINESS [None]
  - LABYRINTHITIS [None]
  - HEADACHE [None]
  - DIABETES MELLITUS [None]
  - DYSPNOEA [None]
  - RETCHING [None]
  - ASTHENIA [None]
  - PULMONARY TUBERCULOSIS [None]
  - VISUAL IMPAIRMENT [None]
  - INFLAMMATION [None]
  - HOSPITALISATION [None]
  - RENAL PAIN [None]
  - HYPERTENSION [None]
  - CHEST PAIN [None]
  - ABDOMINAL DISTENSION [None]
  - TUBERCULOSIS [None]
